FAERS Safety Report 7314239-9 (Version None)
Quarter: 2011Q1

REPORT INFORMATION
  Report Type: 
  Country: None (occurrence: None)
  Receive Date: 20110225
  Receipt Date: 20100616
  Transmission Date: 20110831
  Serious: No
  Sender: FDA-Public Use
  Company Number: US-MYLANLABS-2010S1010812

PATIENT
  Sex: Female

DRUGS (2)
  1. ORAL CONTRACEPTIVE NOS [Concomitant]
     Indication: CONTRACEPTION
  2. AMNESTEEM [Suspect]
     Indication: ACNE
     Route: 048
     Dates: end: 20100613

REACTIONS (2)
  - POST INFLAMMATORY PIGMENTATION CHANGE [None]
  - DRY SKIN [None]
